FAERS Safety Report 5774053-2 (Version None)
Quarter: 2008Q2

REPORT INFORMATION
  Report Type: 
  Country: None (occurrence: None)
  Receive Date: 20080601
  Receipt Date: 20080401
  Transmission Date: 20081010
  Serious: No
  Sender: FDA-Public Use
  Company Number: US200803003999

PATIENT
  Age: 63 Year
  Sex: Male
  Weight: 87.1 kg

DRUGS (4)
  1. BYETTA [Suspect]
     Indication: DIABETES MELLITUS
     Dosage: 5 UG, SUBCUTANEOUS ; 10 UG, SUBCUTANEOUS
     Route: 058
     Dates: start: 20051001, end: 20071001
  2. BYETTA [Suspect]
     Indication: DIABETES MELLITUS
     Dosage: 5 UG, SUBCUTANEOUS ; 10 UG, SUBCUTANEOUS
     Route: 058
     Dates: start: 20070101
  3. METFORMIN HCL [Concomitant]
  4. GLIMEPIRIDE [Concomitant]

REACTIONS (4)
  - BLOOD GLUCOSE FLUCTUATION [None]
  - GLYCOSYLATED HAEMOGLOBIN INCREASED [None]
  - INCORRECT DOSE ADMINISTERED [None]
  - WEIGHT DECREASED [None]
